FAERS Safety Report 11727704 (Version 1)
Quarter: 2015Q4

REPORT INFORMATION
  Report Type: Spontaneous
  Country: IT (occurrence: IT)
  Receive Date: 20151112
  Receipt Date: 20151112
  Transmission Date: 20160304
  Serious: Yes (Hospitalization)
  Sender: FDA-Public Use
  Company Number: PHHY2015IT146673

PATIENT
  Age: 43 Year
  Sex: Female

DRUGS (1)
  1. LETROZOLE. [Suspect]
     Active Substance: LETROZOLE
     Indication: METASTASES TO BONE
     Dosage: 2.5 MG, QD
     Route: 065
     Dates: start: 201401

REACTIONS (7)
  - Dyspnoea [Unknown]
  - Swollen tongue [Unknown]
  - Oral pruritus [Unknown]
  - Hypotension [Unknown]
  - Hypersensitivity [Unknown]
  - Dysphagia [Unknown]
  - Dysphonia [Unknown]

NARRATIVE: CASE EVENT DATE: 201405
